APPROVED DRUG PRODUCT: AXID AR
Active Ingredient: NIZATIDINE
Strength: 75MG
Dosage Form/Route: TABLET;ORAL
Application: N020555 | Product #001
Applicant: HALEON US HOLDINGS LLC
Approved: May 9, 1996 | RLD: Yes | RS: Yes | Type: OTC